FAERS Safety Report 7896834-1 (Version None)
Quarter: 2011Q4

REPORT INFORMATION
  Report Type: 
  Country: None (occurrence: None)
  Receive Date: 20111107
  Receipt Date: 20111026
  Transmission Date: 20120403
  Serious: No
  Sender: FDA-Public Use
  Company Number: US-BIOGENIDEC-2011BI040922

PATIENT
  Age: 35 Year
  Sex: Female

DRUGS (5)
  1. WELLBUTRIN [Concomitant]
     Indication: ANTIDEPRESSANT THERAPY
  2. NUVIGIL [Concomitant]
     Indication: ENERGY INCREASED
  3. VALIUM [Concomitant]
     Indication: STRESS
  4. AVONEX [Suspect]
     Indication: MULTIPLE SCLEROSIS
     Route: 030
     Dates: start: 20080417, end: 20080618
  5. VYVANSE [Concomitant]
     Indication: ATTENTION DEFICIT/HYPERACTIVITY DISORDER

REACTIONS (1)
  - INFLUENZA [None]
